FAERS Safety Report 18986836 (Version 1)
Quarter: 2021Q1

REPORT INFORMATION
  Report Type: Spontaneous
  Country: US (occurrence: US)
  Receive Date: 20210309
  Receipt Date: 20210309
  Transmission Date: 20210420
  Serious: Yes (Hospitalization)
  Sender: FDA-Public Use
  Company Number: None

PATIENT
  Age: 82 Year
  Sex: Male

DRUGS (20)
  1. VIT. D [Concomitant]
     Active Substance: VITAMIN D NOS
  2. HUMIRA [Suspect]
     Active Substance: ADALIMUMAB
     Indication: CROHN^S DISEASE
     Dosage: ?          OTHER FREQUENCY:ON DAY 1;?
     Route: 058
     Dates: start: 20210303
  3. ALLOPURINOL. [Concomitant]
     Active Substance: ALLOPURINOL
  4. ONDANSETRON [Concomitant]
     Active Substance: ONDANSETRON
  5. TRAMADOL HCL [Concomitant]
     Active Substance: TRAMADOL HYDROCHLORIDE
  6. ELIQUIS [Concomitant]
     Active Substance: APIXABAN
  7. SODIUM BICAR [Concomitant]
  8. OXAYDO [Concomitant]
     Active Substance: OXYCODONE HYDROCHLORIDE
  9. PHENAZOPYRID [Concomitant]
  10. AMLODIPINE [Concomitant]
     Active Substance: AMLODIPINE BESYLATE
  11. METOPROL SUC [Concomitant]
  12. HYDROCO/APAP [Concomitant]
     Active Substance: ACETAMINOPHEN\HYDROCODONE
  13. ESOMEPRA MAG [Concomitant]
  14. AMOX/K CLAV [Concomitant]
     Active Substance: AMOXICILLIN\CLAVULANATE POTASSIUM
  15. EZETIMIBE. [Concomitant]
     Active Substance: EZETIMIBE
  16. DOXEPIN [Concomitant]
     Active Substance: DOXEPIN
  17. TAMSULOSIN [Concomitant]
     Active Substance: TAMSULOSIN
  18. BENZONATATE. [Concomitant]
     Active Substance: BENZONATATE
  19. OMEGA?3 ACIDS [Concomitant]
     Active Substance: OMEGA-3 FATTY ACIDS
  20. TEMAZEPAM. [Concomitant]
     Active Substance: TEMAZEPAM

REACTIONS (2)
  - Product storage error [None]
  - Urinary tract infection [None]

NARRATIVE: CASE EVENT DATE: 20210305
